FAERS Safety Report 9641609 (Version 1)
Quarter: 2013Q4

REPORT INFORMATION
  Report Type: Spontaneous
  Country: US (occurrence: US)
  Receive Date: 20131023
  Receipt Date: 20131023
  Transmission Date: 20140711
  Serious: Yes (Other)
  Sender: FDA-Public Use
  Company Number: US-GLAXOSMITHKLINE-A1046381A

PATIENT
  Age: 67 Year
  Sex: Male

DRUGS (1)
  1. MEKINIST [Suspect]
     Indication: PRODUCT USED FOR UNKNOWN INDICATION
     Dosage: .05MG UNKNOWN

REACTIONS (1)
  - Radiotherapy [Unknown]
